FAERS Safety Report 7966269-1 (Version None)
Quarter: 2011Q4

REPORT INFORMATION
  Report Type: 
  Country: None (occurrence: None)
  Receive Date: 20111208
  Receipt Date: 20111202
  Transmission Date: 20120403
  Serious: Yes (Hospitalization)
  Sender: FDA-Public Use
  Company Number: PHHO2011DE020376

PATIENT
  Sex: Male
  Weight: 79 kg

DRUGS (8)
  1. ERGOCALCIFEROL [Concomitant]
     Indication: PROPHYLAXIS
     Dosage: 1000 IU, QD
     Route: 048
  2. PANTOPRAZOLE [Concomitant]
     Indication: PROPHYLAXIS
     Dosage: 40 MG, QD
     Dates: start: 20110911
  3. ZOMETA [Suspect]
     Indication: METASTASES TO BONE
     Dosage: 4 MG, QMO
     Route: 042
     Dates: start: 20080520, end: 20110818
  4. CLINDAMYCIN [Concomitant]
     Indication: NECROSIS
     Dosage: 300 MG, QD
     Dates: start: 20110826, end: 20110826
  5. CLINDAMYCIN [Concomitant]
     Dosage: 300 MG, QD
     Dates: start: 20110904, end: 20110916
  6. MOVIPREP [Concomitant]
     Indication: GASTRITIS
     Route: 048
  7. ASPIRIN [Concomitant]
     Indication: INTERMITTENT CLAUDICATION
     Dosage: 100 MG, QD
     Dates: start: 20110521
  8. LEUPROLIDE ACETATE [Concomitant]
     Indication: PROSTATE CANCER
     Route: 042

REACTIONS (1)
  - OSTEONECROSIS OF JAW [None]
